FAERS Safety Report 18517467 (Version 4)
Quarter: 2020Q4

REPORT INFORMATION
  Report Type: Spontaneous
  Country: RU (occurrence: RU)
  Receive Date: 20201118
  Receipt Date: 20201210
  Transmission Date: 20210114
  Serious: Yes (Death, Life-Threatening, Hospitalization, Other)
  Sender: FDA-Public Use
  Company Number: RU-PFIZER INC-2020454339

PATIENT
  Age: 89 Year
  Sex: Male
  Weight: 73 kg

DRUGS (3)
  1. DEXAMETHASONE. [Concomitant]
     Active Substance: DEXAMETHASONE
     Indication: COVID-19
     Dosage: 6 MG - 8 MG, 2X/DAY
     Route: 048
     Dates: start: 20200624, end: 20200630
  2. AZITHROMYCIN ANHYDROUS. [Concomitant]
     Active Substance: AZITHROMYCIN ANHYDROUS
     Indication: PNEUMONIA
     Dosage: 500 MG, 1X/DAY
     Dates: start: 20200606, end: 20200609
  3. TOFACITINIB CITRATE [Suspect]
     Active Substance: TOFACITINIB CITRATE
     Indication: COVID-19
     Dosage: 10 MG, 2X/DAY
     Route: 048
     Dates: start: 20200611, end: 20200615

REACTIONS (9)
  - Poisoning [Unknown]
  - Pseudomembranous colitis [Unknown]
  - Chronic kidney disease [Unknown]
  - COVID-19 pneumonia [Fatal]
  - Hydrothorax [Unknown]
  - Ascites [Unknown]
  - Electrolyte imbalance [Unknown]
  - Pulmonary congestion [Unknown]
  - Off label use [Unknown]

NARRATIVE: CASE EVENT DATE: 202006
